FAERS Safety Report 4802337-0 (Version None)
Quarter: 2005Q4

REPORT INFORMATION
  Report Type: 
  Country: None (occurrence: None)
  Receive Date: 20051014
  Receipt Date: 20040930
  Transmission Date: 20060501
  Serious: Yes (Other)
  Sender: FDA-Public Use
  Company Number: 2004054424

PATIENT
  Sex: Male

DRUGS (1)
  1. NEURONTIN [Suspect]
     Indication: NEUROPATHY
     Dosage: 600 MG (200 MG, 3 IN 1 D), ORAL
     Route: 048
     Dates: start: 20040603

REACTIONS (18)
  - BURNING SENSATION [None]
  - COORDINATION ABNORMAL [None]
  - DEPRESSION [None]
  - DIFFICULTY IN WALKING [None]
  - DISTURBANCE IN ATTENTION [None]
  - DIZZINESS [None]
  - FATIGUE [None]
  - INJURY [None]
  - INSOMNIA [None]
  - JOINT INJURY [None]
  - LIMB DISCOMFORT [None]
  - MOOD ALTERED [None]
  - PAIN [None]
  - PRURITUS [None]
  - RASH [None]
  - SOMNOLENCE [None]
  - SUICIDE ATTEMPT [None]
  - VISUAL DISTURBANCE [None]
